FAERS Safety Report 13423086 (Version 7)
Quarter: 2017Q4

REPORT INFORMATION
  Report Type: Report from Study
  Country: BR (occurrence: BR)
  Receive Date: 20170410
  Receipt Date: 20171102
  Transmission Date: 20180320
  Serious: Yes (Hospitalization)
  Sender: FDA-Public Use
  Company Number: BR-ROCHE-1868181

PATIENT
  Age: 54 Year
  Sex: Female
  Weight: 75.1 kg

DRUGS (24)
  1. BENADRYL (BRAZIL) [Concomitant]
     Active Substance: DIPHENHYDRAMINE HYDROCHLORIDE
     Route: 065
     Dates: start: 20161028
  2. FLUOXETINE [Concomitant]
     Active Substance: FLUOXETINE HYDROCHLORIDE
     Route: 065
     Dates: start: 20170215, end: 20170415
  3. LOSARTAN. [Concomitant]
     Active Substance: LOSARTAN
     Route: 065
     Dates: start: 20170408
  4. ATEZOLIZUMAB. [Suspect]
     Active Substance: ATEZOLIZUMAB
     Indication: BREAST CANCER METASTATIC
     Dosage: MOST RECENT DOSE (840MG) ON 07/DEC/2016 AND 30/MAR/2017.
     Route: 042
     Dates: start: 20161028
  5. OXACILLIN [Concomitant]
     Active Substance: OXACILLIN SODIUM
     Indication: INFECTION
     Route: 065
     Dates: start: 20161213, end: 20161214
  6. CLEXANE [Concomitant]
     Active Substance: ENOXAPARIN SODIUM
     Dosage: ANTICOAGULANT
     Route: 065
     Dates: start: 20170402, end: 20170413
  7. CLEXANE [Concomitant]
     Active Substance: ENOXAPARIN SODIUM
     Route: 065
     Dates: start: 20161211, end: 20161211
  8. DIPYRONE [Concomitant]
     Active Substance: DIPYRONE
     Dosage: ANALGESIC ANTITERM
     Route: 065
     Dates: start: 20170402, end: 20170402
  9. DIPYRONE [Concomitant]
     Active Substance: DIPYRONE
     Dosage: ANALGESIC ANTITERM
     Route: 065
     Dates: start: 20170406, end: 20170406
  10. TYLENOL [Concomitant]
     Active Substance: ACETAMINOPHEN
     Dosage: ANLGESIC ANTITERM
     Route: 065
     Dates: start: 20161209, end: 20161210
  11. TEICOPLANIN [Concomitant]
     Active Substance: TEICOPLANIN
     Route: 065
     Dates: start: 20161209, end: 20161212
  12. COZAAR [Concomitant]
     Active Substance: LOSARTAN POTASSIUM
     Indication: HYPERTENSION
     Route: 065
     Dates: start: 20170407, end: 20170413
  13. DIPYRONE [Concomitant]
     Active Substance: DIPYRONE
     Route: 065
     Dates: start: 20161209, end: 20161210
  14. NAB-PACLITAXEL [Suspect]
     Active Substance: PACLITAXEL
     Indication: BREAST CANCER METASTATIC
     Dosage: ON DAY 1, DAY 8, AND DAY 15 OF EACH 28 DAYS CYCLE (PER PROTOCOL)?MOST RECENT DOSE 07/DEC/2016 AND 30
     Route: 042
     Dates: start: 20161028
  15. ATENSINA [Concomitant]
     Active Substance: CLONIDINE
     Indication: HYPERTENSION
     Route: 065
     Dates: start: 20170407, end: 20170408
  16. CLEXANE [Concomitant]
     Active Substance: ENOXAPARIN SODIUM
     Route: 065
     Dates: start: 20161216, end: 20161216
  17. LOSEC [Concomitant]
     Active Substance: OMEPRAZOLE
     Route: 065
     Dates: start: 20170405, end: 20170413
  18. DIPYRONE [Concomitant]
     Active Substance: DIPYRONE
     Route: 065
     Dates: start: 20161212, end: 20161217
  19. CLEXANE [Concomitant]
     Active Substance: ENOXAPARIN SODIUM
     Route: 065
     Dates: start: 20161213, end: 20161214
  20. DIPYRONE [Concomitant]
     Active Substance: DIPYRONE
     Dosage: ANALGESIC ANTITERM
     Route: 065
     Dates: start: 20170404, end: 20170404
  21. ZOFRAN [Concomitant]
     Active Substance: ONDANSETRON HYDROCHLORIDE
     Indication: PROPHYLAXIS OF NAUSEA AND VOMITING
     Route: 065
     Dates: start: 20161028
  22. FLUOXETINE [Concomitant]
     Active Substance: FLUOXETINE HYDROCHLORIDE
     Route: 065
     Dates: start: 20170427
  23. LOSEC [Concomitant]
     Active Substance: OMEPRAZOLE
     Indication: GASTRIC ULCER
     Route: 065
     Dates: start: 20170403, end: 20170403
  24. NOVALGINA [Concomitant]
     Active Substance: METAMIZOLE SODIUM
     Dosage: 13 APR 2017
     Route: 065
     Dates: start: 20170413, end: 20170413

REACTIONS (2)
  - Device related infection [Recovered/Resolved]
  - Catheter site infection [Recovered/Resolved]

NARRATIVE: CASE EVENT DATE: 20161209
